FAERS Safety Report 8052047-4 (Version None)
Quarter: 2012Q1

REPORT INFORMATION
  Report Type: 
  Country: None (occurrence: None)
  Receive Date: 20120118
  Receipt Date: 20120108
  Transmission Date: 20120608
  Serious: Yes (Hospitalization, Other)
  Sender: FDA-Public Use
  Company Number: ES-ELI_LILLY_AND_COMPANY-ES201112000044

PATIENT
  Sex: Female
  Weight: 70 kg

DRUGS (2)
  1. ENOXAPARIN SODIUM [Concomitant]
     Indication: HEPARIN NEUTRALISATION THERAPY
     Dosage: 1 DF, QD
     Route: 058
  2. FORTEO [Suspect]
     Indication: OSTEOPOROSIS
     Dosage: 20 UG, QD
     Route: 058
     Dates: start: 20110614

REACTIONS (3)
  - FEMORAL NECK FRACTURE [None]
  - INJURY [None]
  - FALL [None]
